FAERS Safety Report 5860955-5 (Version None)
Quarter: 2008Q3

REPORT INFORMATION
  Report Type: 
  Country: None (occurrence: None)
  Receive Date: 20080827
  Receipt Date: 20080110
  Transmission Date: 20090109
  Serious: No
  Sender: FDA-Public Use
  Company Number: US-ABBOTT-08P-163-0432910-00

PATIENT
  Sex: Female
  Weight: 72.64 kg

DRUGS (4)
  1. NIASPAN [Suspect]
     Indication: BLOOD CHOLESTEROL INCREASED
     Dosage: WHITE
     Route: 048
     Dates: start: 20060101, end: 20070801
  2. NIASPAN [Suspect]
     Dosage: ORGANGE
     Route: 048
     Dates: start: 20071201
  3. LESCHOL [Concomitant]
     Indication: BLOOD CHOLESTEROL
  4. ACETYLSALICYLIC ACID SRT [Concomitant]
     Indication: PROPHYLAXIS

REACTIONS (4)
  - ANIMAL BITE [None]
  - FLUSHING [None]
  - LIP SWELLING [None]
  - SWELLING FACE [None]
